FAERS Safety Report 9683507 (Version 3)
Quarter: 2014Q1

REPORT INFORMATION
  Report Type: Spontaneous
  Country: US (occurrence: US)
  Receive Date: 20131112
  Receipt Date: 20140310
  Transmission Date: 20141002
  Serious: Yes (Disabling, Other)
  Sender: FDA-Public Use
  Company Number: US-009507513-1311USA003223

PATIENT
  Sex: Female

DRUGS (2)
  1. FOSAMAX [Suspect]
     Indication: OSTEOPOROSIS
     Dosage: 70 MG, UNK
     Route: 048
     Dates: start: 2000, end: 2003
  2. BONIVA [Concomitant]
     Indication: OSTEOPOROSIS
     Dosage: UNK
     Dates: start: 2003, end: 2008

REACTIONS (2)
  - Osteonecrosis of jaw [Not Recovered/Not Resolved]
  - Radiotherapy [Unknown]
